FAERS Safety Report 7521535-9 (Version None)
Quarter: 2011Q2

REPORT INFORMATION
  Report Type: 
  Country: None (occurrence: None)
  Receive Date: 20110603
  Receipt Date: 20110524
  Transmission Date: 20111010
  Serious: Yes (Other)
  Sender: FDA-Public Use
  Company Number: US-JNJFOC-20110511089

PATIENT
  Sex: Female
  Weight: 108.86 kg

DRUGS (4)
  1. TOPAMAX [Suspect]
     Route: 048
     Dates: start: 20101001
  2. TOPAMAX [Suspect]
     Route: 048
     Dates: start: 20090101, end: 20100401
  3. TOPIRAMATE [Suspect]
     Indication: CONVULSION
     Route: 048
     Dates: start: 20101001, end: 20101001
  4. TOPAMAX [Suspect]
     Indication: CONVULSION
     Route: 048
     Dates: start: 20100401, end: 20101001

REACTIONS (6)
  - CONVULSION [None]
  - STRESS [None]
  - WEIGHT DECREASED [None]
  - BLOOD TEST ABNORMAL [None]
  - POSTPARTUM DEPRESSION [None]
  - DRUG EXPOSURE DURING PREGNANCY [None]
